FAERS Safety Report 7690703-8 (Version None)
Quarter: 2011Q3

REPORT INFORMATION
  Report Type: 
  Country: None (occurrence: None)
  Receive Date: 20110817
  Receipt Date: 20110817
  Transmission Date: 20111222
  Serious: Yes (Hospitalization)
  Sender: FDA-Public Use
  Company Number: None

PATIENT
  Age: 57 Year
  Sex: Female
  Weight: 69.91 kg

DRUGS (9)
  1. DULOXETIME HYDROCHLORIDE [Concomitant]
  2. SORAFENIB/BAYER [Suspect]
     Indication: PANCREATIC CARCINOMA
     Dosage: 400MG DAILY ORAL
     Route: 048
     Dates: start: 20110210, end: 20110613
  3. ERLOTINIB HYDROCHLORIDE [Suspect]
     Indication: PANCREATIC CARCINOMA
     Dosage: 100MG DAILY ORAL
     Route: 048
     Dates: start: 20110210, end: 20110613
  4. WELLBUTRIN XL [Concomitant]
  5. CREON [Concomitant]
  6. MINOCYCLINE HCL [Concomitant]
  7. OXYCODONE HCL [Concomitant]
  8. MULTI-VITAMIN [Concomitant]
  9. ERGOCALCIFEROL [Concomitant]

REACTIONS (1)
  - BACK PAIN [None]
